FAERS Safety Report 15409193 (Version 2)
Quarter: 2018Q4

REPORT INFORMATION
  Report Type: Report from Study
  Country: US (occurrence: US)
  Receive Date: 20180920
  Receipt Date: 20181029
  Transmission Date: 20190204
  Serious: No
  Sender: FDA-Public Use
  Company Number: PHEH2018US038072

PATIENT
  Age: 72 Year
  Sex: Female

DRUGS (2)
  1. GILENYA [Suspect]
     Active Substance: FINGOLIMOD HYDROCHLORIDE
     Dosage: 0.5 MG, QD
     Route: 048
     Dates: start: 20180810
  2. GILENYA [Suspect]
     Active Substance: FINGOLIMOD HYDROCHLORIDE
     Indication: MULTIPLE SCLEROSIS
     Dosage: 0.5 MG, QD
     Route: 048

REACTIONS (8)
  - Feeling of body temperature change [Recovered/Resolved]
  - Headache [Recovering/Resolving]
  - Nausea [Unknown]
  - Drug intolerance [Unknown]
  - Neck pain [Recovering/Resolving]
  - Vomiting [Recovering/Resolving]
  - Feeling of body temperature change [Recovering/Resolving]
  - Malaise [Unknown]

NARRATIVE: CASE EVENT DATE: 20180806
